FAERS Safety Report 17377325 (Version 4)
Quarter: 2020Q1

REPORT INFORMATION
  Report Type: Spontaneous
  Country: US (occurrence: US)
  Receive Date: 20200206
  Receipt Date: 20200225
  Transmission Date: 20200409
  Serious: Yes (Other)
  Sender: FDA-Public Use
  Company Number: US-PFIZER INC-2020052435

PATIENT
  Age: 87 Year
  Sex: Female
  Weight: 75 kg

DRUGS (2)
  1. IBRANCE [Suspect]
     Active Substance: PALBOCICLIB
     Indication: NEOPLASM MALIGNANT
  2. IBRANCE [Suspect]
     Active Substance: PALBOCICLIB
     Indication: SARCOMA
     Dosage: 125 MG, CYCLIC [D 1-21 Q (EVERY) 28 DAYS]
     Route: 048
     Dates: start: 20200130, end: 20200217

REACTIONS (6)
  - Nausea [Unknown]
  - Product use in unapproved indication [Unknown]
  - Mouth ulceration [Unknown]
  - Off label use [Unknown]
  - Epistaxis [Unknown]
  - Pharyngeal ulceration [Unknown]

NARRATIVE: CASE EVENT DATE: 20200130
